FAERS Safety Report 9371724 (Version 1)
Quarter: 2013Q2

REPORT INFORMATION
  Report Type: Spontaneous
  Country: US (occurrence: US)
  Receive Date: 20130627
  Receipt Date: 20130627
  Transmission Date: 20140414
  Serious: No
  Sender: FDA-Public Use
  Company Number: US-TEVA-414447USA

PATIENT
  Sex: Female
  Weight: 44.04 kg

DRUGS (1)
  1. ACTIQ [Suspect]
     Route: 048
     Dates: start: 2001

REACTIONS (1)
  - Pain [Not Recovered/Not Resolved]
